FAERS Safety Report 10023922 (Version 1)
Quarter: 2014Q1

REPORT INFORMATION
  Report Type: Spontaneous
  Country: US (occurrence: None)
  Receive Date: 20140319
  Receipt Date: 20140319
  Transmission Date: 20141002
  Serious: Yes (Other)
  Sender: FDA-Public Use
  Company Number: None

PATIENT
  Sex: 0

DRUGS (1)
  1. ALPHAGAN P [Suspect]
     Indication: GLAUCOMA
     Dosage: 15CC 2X DAILY OPHTHALMIC DROPS
     Route: 047
     Dates: start: 20140306, end: 20140307

REACTIONS (9)
  - Eye irritation [None]
  - Ocular hyperaemia [None]
  - Eyelid disorder [None]
  - Scleral hyperaemia [None]
  - Headache [None]
  - Pain [None]
  - Product quality issue [None]
  - Product contamination [None]
  - Product packaging issue [None]
